FAERS Safety Report 8347013-5 (Version None)
Quarter: 2012Q2

REPORT INFORMATION
  Report Type: 
  Country: None (occurrence: None)
  Receive Date: 20120507
  Receipt Date: 20120507
  Transmission Date: 20120825
  Serious: Yes (Hospitalization)
  Sender: FDA-Public Use
  Company Number: None

PATIENT
  Sex: Male
  Weight: 77 kg

DRUGS (4)
  1. VINCRISTINE SULFATE [Suspect]
     Dosage: 2 MG
  2. METHOTREXATE [Suspect]
     Dosage: 15 MG
  3. MERCAPTOPURINE [Suspect]
     Dosage: 650 MG
  4. DEXAMETHASONE [Suspect]
     Dosage: 60 MG

REACTIONS (6)
  - DECREASED APPETITE [None]
  - PANCYTOPENIA [None]
  - PNEUMONIA FUNGAL [None]
  - FULL BLOOD COUNT ABNORMAL [None]
  - FATIGUE [None]
  - HEADACHE [None]
